FAERS Safety Report 5350898-8 (Version None)
Quarter: 2007Q2

REPORT INFORMATION
  Report Type: 
  Country: None (occurrence: None)
  Receive Date: 20070606
  Receipt Date: 20070606
  Transmission Date: 20071010
  Serious: Yes (Death, Life-Threatening, Hospitalization)
  Sender: FDA-Public Use
  Company Number: None

PATIENT
  Age: 40 Year
  Sex: Male
  Weight: 105 kg

DRUGS (12)
  1. ZOMETA [Suspect]
     Indication: BRAIN NEOPLASM
     Dosage: 4MG Q12 WEEKS IV
     Route: 042
     Dates: start: 20061220
  2. ZOMETA [Suspect]
     Indication: OSTEOPOROSIS
     Dosage: 4MG Q12 WEEKS IV
     Route: 042
     Dates: start: 20061220
  3. ZOLOFT [Concomitant]
  4. COUMADIN [Concomitant]
  5. POTASSIUM CHLORIDE [Concomitant]
  6. DILANTIN [Concomitant]
  7. DEXAMETHASONE 0.5MG TAB [Concomitant]
  8. PEPCID [Concomitant]
  9. ATIVAN [Concomitant]
  10. MORPHINE [Concomitant]
  11. CELEBREX [Concomitant]
  12. DIFLUCAN [Concomitant]

REACTIONS (15)
  - ALANINE AMINOTRANSFERASE INCREASED [None]
  - ASPARTATE AMINOTRANSFERASE [None]
  - ASPARTATE AMINOTRANSFERASE INCREASED [None]
  - BLOOD ALKALINE PHOSPHATASE INCREASED [None]
  - CONFUSIONAL STATE [None]
  - DISEASE PROGRESSION [None]
  - DRUG TOLERANCE DECREASED [None]
  - GENERAL PHYSICAL HEALTH DETERIORATION [None]
  - HYPERGLYCAEMIA [None]
  - HYPONATRAEMIA [None]
  - HYPOTHYROIDIC GOITRE [None]
  - HYPOVENTILATION [None]
  - INTERNATIONAL NORMALISED RATIO INCREASED [None]
  - PO2 DECREASED [None]
  - RESPIRATORY DISORDER [None]
